FAERS Safety Report 5352514-8 (Version None)
Quarter: 2007Q2

REPORT INFORMATION
  Report Type: 
  Country: None (occurrence: None)
  Receive Date: 20070611
  Receipt Date: 20070531
  Transmission Date: 20071010
  Serious: Yes (Hospitalization)
  Sender: FDA-Public Use
  Company Number: US-AMGEN-STX218044

PATIENT
  Sex: Female

DRUGS (5)
  1. ENBREL [Suspect]
     Indication: RHEUMATOID ARTHRITIS
     Route: 058
     Dates: start: 20060801
  2. PLAQUENIL [Concomitant]
     Route: 048
     Dates: start: 19950101
  3. PREDNISONE TAB [Concomitant]
  4. VITAMIN D [Concomitant]
     Route: 048
     Dates: start: 19990101
  5. FOSAMAX [Concomitant]
     Dates: start: 19990101

REACTIONS (3)
  - OSTEONECROSIS [None]
  - RHEUMATOID ARTHRITIS [None]
  - TENOSYNOVITIS [None]
